FAERS Safety Report 4907278-6 (Version None)
Quarter: 2006Q1

REPORT INFORMATION
  Report Type: 
  Country: None (occurrence: None)
  Receive Date: 20060207
  Receipt Date: 20060125
  Transmission Date: 20060701
  Serious: Yes (Hospitalization, Disabling, Other)
  Sender: FDA-Public Use
  Company Number: 2004117393

PATIENT
  Age: 33 Year
  Sex: Male

DRUGS (5)
  1. NEURONTIN [Suspect]
     Indication: ANXIETY
     Dosage: 900 MG (300 MG,3 IN 1 D), UNKNOWN
     Route: 065
     Dates: start: 20010212, end: 20010910
  2. NEURONTIN [Suspect]
     Indication: DEPRESSION
     Dosage: 900 MG (300 MG,3 IN 1 D), UNKNOWN
     Route: 065
     Dates: start: 20010212, end: 20010910
  3. TRAZODONE HCL [Concomitant]
  4. REMERON [Concomitant]
  5. REVIA [Concomitant]

REACTIONS (19)
  - ALCOHOL USE [None]
  - ANXIETY [None]
  - DEPRESSION [None]
  - DRUG INEFFECTIVE [None]
  - FACIAL BONES FRACTURE [None]
  - GUN SHOT WOUND [None]
  - INCONTINENCE [None]
  - INSOMNIA [None]
  - IRRITABILITY [None]
  - MIGRAINE [None]
  - MOOD SWINGS [None]
  - MULTIPLE DRUG OVERDOSE [None]
  - OVERDOSE [None]
  - PAIN [None]
  - SCAR [None]
  - SOFT TISSUE DISORDER [None]
  - STRESS [None]
  - SUICIDE ATTEMPT [None]
  - UNEVALUABLE EVENT [None]
